FAERS Safety Report 10246705 (Version 1)
Quarter: 2014Q2

REPORT INFORMATION
  Report Type: Spontaneous
  Country: US (occurrence: US)
  Receive Date: 20140619
  Receipt Date: 20140619
  Transmission Date: 20141212
  Serious: Yes (Other)
  Sender: FDA-Public Use
  Company Number: US-PFIZER INC-2014167258

PATIENT
  Age: 87 Year
  Sex: Female
  Weight: 47.62 kg

DRUGS (3)
  1. LYRICA [Suspect]
     Indication: NEURALGIA
     Dosage: 50 MG, DAILY
     Dates: start: 20131025, end: 201402
  2. DILTIAZEM [Concomitant]
     Dosage: 240 MG, DAILY
  3. CLONIDINE [Concomitant]
     Dosage: 30 MG, UNK

REACTIONS (3)
  - Renal impairment [Unknown]
  - Aphagia [Unknown]
  - Neuralgia [Unknown]
